FAERS Safety Report 20571896 (Version 2)
Quarter: 2022Q1

REPORT INFORMATION
  Report Type: Spontaneous
  Country: JP (occurrence: JP)
  Receive Date: 20220309
  Receipt Date: 20220315
  Transmission Date: 20220423
  Serious: No
  Sender: FDA-Public Use
  Company Number: JP-GLAXOSMITHKLINE-JP2022JPN040600

PATIENT
  Sex: Female
  Weight: 58 kg

DRUGS (2)
  1. SOTROVIMAB [Suspect]
     Active Substance: SOTROVIMAB
     Indication: COVID-19
     Dosage: 500 MG PER DOSE
     Dates: start: 20220301, end: 20220301
  2. ACETAMINOPHEN [Suspect]
     Active Substance: ACETAMINOPHEN
     Indication: Antipyresis
     Dosage: 400 MG PER DOSE
     Route: 048
     Dates: start: 20220301

REACTIONS (1)
  - Exposure during pregnancy [Unknown]
